FAERS Safety Report 10084862 (Version 1)
Quarter: 2014Q2

REPORT INFORMATION
  Report Type: Spontaneous
  Country: AU (occurrence: AU)
  Receive Date: 20140417
  Receipt Date: 20140417
  Transmission Date: 20141212
  Serious: Yes (Hospitalization)
  Sender: FDA-Public Use
  Company Number: AU-BAYER-2014-054159

PATIENT
  Age: 76 Year
  Sex: Male

DRUGS (1)
  1. GADOVIST [Suspect]
     Dosage: UNK UNK, ONCE
     Dates: start: 20140408, end: 20140408

REACTIONS (4)
  - Unresponsive to stimuli [None]
  - Cough [None]
  - Speech disorder [None]
  - Unevaluable event [None]
